FAERS Safety Report 10620964 (Version 1)
Quarter: 2014Q4

REPORT INFORMATION
  Report Type: Spontaneous
  Country: US (occurrence: US)
  Receive Date: 20141203
  Receipt Date: 20141203
  Transmission Date: 20150529
  Serious: Yes (Death, Hospitalization, Other)
  Sender: FDA-Public Use
  Company Number: PHHY2014US153878

PATIENT
  Age: 47 Year
  Sex: Female

DRUGS (5)
  1. DOXORUBICIN [Suspect]
     Active Substance: DOXORUBICIN
     Indication: MUELLER^S MIXED TUMOUR
     Dosage: 40 MG/M2, UNK
     Route: 065
  2. GEMCITABINE [Suspect]
     Active Substance: GEMCITABINE\GEMCITABINE HYDROCHLORIDE
     Indication: MUELLER^S MIXED TUMOUR
     Dosage: 675 MG/M2, UNK
     Route: 065
  3. DOCETAXEL. [Suspect]
     Active Substance: DOCETAXEL
     Dosage: 35 MG/M2, UNK
     Route: 065
  4. DOCETAXEL. [Suspect]
     Active Substance: DOCETAXEL
     Indication: MUELLER^S MIXED TUMOUR
     Dosage: 75 MG/M2, UNK
     Route: 065
  5. IFOSFAMIDE. [Suspect]
     Active Substance: IFOSFAMIDE
     Indication: MUELLER^S MIXED TUMOUR
     Dosage: 2000 MG/M2, UNK
     Route: 065

REACTIONS (7)
  - Uterine enlargement [Fatal]
  - Metastatic neoplasm [Unknown]
  - Colitis [Unknown]
  - Cervix cancer metastatic [Fatal]
  - Metastases to lung [Unknown]
  - Mueller^s mixed tumour [Fatal]
  - Malignant neoplasm progression [Unknown]
